FAERS Safety Report 19267259 (Version 3)
Quarter: 2021Q2

REPORT INFORMATION
  Report Type: Spontaneous
  Country: US (occurrence: US)
  Receive Date: 20210518
  Receipt Date: 20210615
  Transmission Date: 20210717
  Serious: No
  Sender: FDA-Public Use
  Company Number: US-STRONGBRIDGE BIOPHARMA-2021-STR-000174

PATIENT
  Age: 61 Year
  Sex: Female

DRUGS (1)
  1. KEVEYIS [Suspect]
     Active Substance: DICHLORPHENAMIDE
     Indication: FAMILIAL PERIODIC PARALYSIS
     Dosage: 75 MG, QD
     Route: 048
     Dates: start: 20170428

REACTIONS (10)
  - Stress [Unknown]
  - Disease recurrence [Unknown]
  - Wrong technique in product usage process [Unknown]
  - Headache [Unknown]
  - Malaise [Unknown]
  - Paraesthesia [Unknown]
  - Decreased appetite [Unknown]
  - Blood potassium decreased [Unknown]
  - Paraesthesia [Recovering/Resolving]
  - Sensory overload [Unknown]

NARRATIVE: CASE EVENT DATE: 20210505
